FAERS Safety Report 7916588-X (Version None)
Quarter: 2011Q4

REPORT INFORMATION
  Report Type: 
  Country: None (occurrence: None)
  Receive Date: 20111031
  Receipt Date: 20111024
  Transmission Date: 20120403
  Serious: Yes (Other)
  Sender: FDA-Public Use
  Company Number: 2011030156

PATIENT
  Age: 23 Year
  Sex: Male

DRUGS (1)
  1. SANDOGLOBULIN [Suspect]
     Indication: BRUTON'S AGAMMAGLOBULINAEMIA
     Dosage: (0.34 G/KG/4 WEEKS INTRAVENOUS (NOT OTHERWISE SPECIFIED))

REACTIONS (1)
  - GLOMERULONEPHRITIS MEMBRANOUS [None]
